FAERS Safety Report 6142567-1 (Version None)
Quarter: 2009Q2

REPORT INFORMATION
  Report Type: 
  Country: None (occurrence: None)
  Receive Date: 20090403
  Receipt Date: 20090325
  Transmission Date: 20091009
  Serious: Yes (Other)
  Sender: FDA-Public Use
  Company Number: US-JNJFOC-20090307269

PATIENT
  Sex: Female
  Weight: 71.22 kg

DRUGS (2)
  1. REMICADE [Suspect]
     Indication: RHEUMATOID ARTHRITIS
     Route: 042
  2. PAIN MEDICATION [Concomitant]

REACTIONS (2)
  - ASTHMA [None]
  - FLUID RETENTION [None]
